FAERS Safety Report 5700663-4 (Version None)
Quarter: 2008Q2

REPORT INFORMATION
  Report Type: 
  Country: None (occurrence: None)
  Receive Date: 20080410
  Receipt Date: 20080331
  Transmission Date: 20081010
  Serious: Yes (Hospitalization)
  Sender: FDA-Public Use
  Company Number: PL-MERCK-0804POL00001

PATIENT
  Age: 14 Year
  Sex: Male

DRUGS (4)
  1. SINGULAIR [Suspect]
     Indication: ASTHMA
     Route: 048
     Dates: start: 20040101, end: 20070101
  2. SINGULAIR [Suspect]
     Route: 048
     Dates: start: 20070101, end: 20080331
  3. FLUTICASONE PROPIONATE [Concomitant]
     Indication: ASTHMA
     Dates: start: 20040101
  4. SALMETEROL XINAFOATE [Concomitant]
     Indication: ASTHMA
     Dates: start: 20040101

REACTIONS (7)
  - AGGRESSION [None]
  - ANXIETY [None]
  - DISSOCIATION [None]
  - HALLUCINATION [None]
  - PALPITATIONS [None]
  - PARANOIA [None]
  - VERTIGO [None]
